FAERS Safety Report 5216861-2 (Version None)
Quarter: 2007Q1

REPORT INFORMATION
  Report Type: 
  Country: None (occurrence: None)
  Receive Date: 20070119
  Receipt Date: 20061011
  Transmission Date: 20070707
  Serious: Yes (Life-Threatening, Hospitalization)
  Sender: FDA-Public Use
  Company Number: TPA2006A01769

PATIENT
  Age: 66 Year
  Sex: Male
  Weight: 91.5 kg

DRUGS (8)
  1. PIOGLITAZONE HYDROCHLORIDE (PLACEBO) (PIOGLITAZONE HYDROCHLORIDE) (TAB [Suspect]
     Dosage: 1 IN 1 D, PER ORAL
     Route: 048
     Dates: start: 20060802
  2. ALLEGRA [Concomitant]
  3. COUMADIN [Concomitant]
  4. LIPITOR [Concomitant]
  5. NEURONTIN [Concomitant]
  6. QUINAPRIL HCL [Concomitant]
  7. NIACIN [Concomitant]
  8. ASPIRIN [Concomitant]

REACTIONS (1)
  - BRAIN NEOPLASM [None]
